FAERS Safety Report 18338635 (Version 1)
Quarter: 2020Q4

REPORT INFORMATION
  Report Type: Spontaneous
  Country: US (occurrence: US)
  Receive Date: 20201002
  Receipt Date: 20201002
  Transmission Date: 20210113
  Serious: No
  Sender: FDA-Public Use
  Company Number: US-SAREPTA THERAPEUTICS INC.-SRP2020-000627

PATIENT
  Sex: Male
  Weight: 43.99 kg

DRUGS (1)
  1. EXONDYS 51 [Suspect]
     Active Substance: ETEPLIRSEN
     Indication: DUCHENNE MUSCULAR DYSTROPHY
     Dosage: 50 MG/ML, WEEKLY
     Route: 065
     Dates: start: 201812

REACTIONS (4)
  - Dehydration [Recovered/Resolved]
  - Headache [Recovered/Resolved]
  - Thirst [Recovered/Resolved]
  - Dry skin [Not Recovered/Not Resolved]
